APPROVED DRUG PRODUCT: ALTABAX
Active Ingredient: RETAPAMULIN
Strength: 1%
Dosage Form/Route: OINTMENT;TOPICAL
Application: N022055 | Product #001
Applicant: ALMIRALL LLC
Approved: Apr 12, 2007 | RLD: Yes | RS: No | Type: DISCN

PATENTS:
Patent 7875630 | Expires: Feb 14, 2027